FAERS Safety Report 6534271-2 (Version None)
Quarter: 2009Q4

REPORT INFORMATION
  Report Type: 
  Country: None (occurrence: None)
  Receive Date: 20091214
  Receipt Date: 20090113
  Transmission Date: 20100525
  Serious: Yes (Life-Threatening)
  Sender: FDA-Public Use
  Company Number: 507520

PATIENT
  Age: 54 Year
  Sex: Female

DRUGS (6)
  1. PEGASYS [Suspect]
     Indication: HEPATITIS C
     Dosage: 180 MG 1 PER WEEK SUBCUTANEOUS
     Route: 058
     Dates: start: 20070608, end: 20080509
  2. COPEGUS [Suspect]
     Indication: HEPATITIS C
     Dosage: 600 MG 2 PER DAY
     Dates: start: 20070608, end: 20080509
  3. ADDERALL 10 [Suspect]
     Indication: ATTENTION DEFICIT/HYPERACTIVITY DISORDER
     Dosage: 10 MG
  4. TOPROL-XL [Concomitant]
  5. HYDROCHLOROTHIAZIDE [Concomitant]
  6. TRILEPTAL [Concomitant]

REACTIONS (51)
  - AFFECT LABILITY [None]
  - ALOPECIA [None]
  - ANAEMIA [None]
  - ANGER [None]
  - ANXIETY [None]
  - ASTHENIA [None]
  - BLOOD POTASSIUM DECREASED [None]
  - CONTUSION [None]
  - COUGH [None]
  - DECREASED APPETITE [None]
  - DEHYDRATION [None]
  - DEPRESSION [None]
  - DISEASE RECURRENCE [None]
  - DISTURBANCE IN ATTENTION [None]
  - DRY EYE [None]
  - DRY MOUTH [None]
  - DRY SKIN [None]
  - DRY THROAT [None]
  - DYSPEPSIA [None]
  - FALL [None]
  - FEELING OF BODY TEMPERATURE CHANGE [None]
  - FOOD CRAVING [None]
  - FUNGAL SKIN INFECTION [None]
  - HAEMORRHOIDS [None]
  - HEADACHE [None]
  - HEPATITIS C [None]
  - HYPERSOMNIA [None]
  - ILL-DEFINED DISORDER [None]
  - IMPAIRED HEALING [None]
  - INCORRECT DOSE ADMINISTERED [None]
  - INCREASED APPETITE [None]
  - INCREASED TENDENCY TO BRUISE [None]
  - INJECTION SITE REACTION [None]
  - IRRITABILITY [None]
  - JOINT INJURY [None]
  - LIBIDO INCREASED [None]
  - LICHEN PLANUS [None]
  - MUSCLE ATROPHY [None]
  - NO ADVERSE EVENT [None]
  - ONYCHOLYSIS [None]
  - PALPITATIONS [None]
  - POLYP [None]
  - PRURITUS [None]
  - RASH PAPULAR [None]
  - SKIN EXFOLIATION [None]
  - SUICIDE ATTEMPT [None]
  - SYNCOPE [None]
  - TONGUE COATED [None]
  - TONGUE DISORDER [None]
  - WEIGHT INCREASED [None]
  - WHITE BLOOD CELL COUNT DECREASED [None]
